FAERS Safety Report 6510095-7 (Version None)
Quarter: 2009Q4

REPORT INFORMATION
  Report Type: 
  Country: None (occurrence: None)
  Receive Date: 20091222
  Receipt Date: 20090914
  Transmission Date: 20100525
  Serious: No
  Sender: FDA-Public Use
  Company Number: US-BAUSCH-2009BL004659

PATIENT
  Age: 60 Year
  Sex: Female

DRUGS (6)
  1. ALAWAY [Suspect]
     Indication: DRUG HYPERSENSITIVITY
     Route: 047
     Dates: start: 20090606
  2. ALPHAGAN [Concomitant]
     Indication: GLAUCOMA
     Route: 047
     Dates: start: 20080601
  3. AZOPT [Concomitant]
     Indication: GLAUCOMA
     Dates: start: 19960101
  4. TIMOLOL MALEATE [Concomitant]
     Indication: GLAUCOMA
     Dates: start: 19960101
  5. TRAVATAN [Concomitant]
     Indication: GLAUCOMA
     Route: 047
  6. TEARS NATURALE [Concomitant]

REACTIONS (1)
  - RASH [None]
